FAERS Safety Report 9267239 (Version 2)
Quarter: 2013Q2

REPORT INFORMATION
  Report Type: Report from Study
  Country: BR (occurrence: BR)
  Receive Date: 20130502
  Receipt Date: 20130530
  Transmission Date: 20140414
  Serious: Yes (Death, Hospitalization, Other)
  Sender: FDA-Public Use
  Company Number: PHHY2013BR043155

PATIENT
  Sex: Male

DRUGS (4)
  1. ONBREZ [Suspect]
     Indication: CHRONIC OBSTRUCTIVE PULMONARY DISEASE
     Dosage: 300 UG, QD
  2. ACETYLCYSTEINE [Concomitant]
     Indication: PRODUCTIVE COUGH
     Dosage: 600 MG, QD
     Route: 048
  3. FENOTEROL HYDROBROMIDE [Concomitant]
     Indication: LUNG DISORDER
     Dosage: 5 GTT, UNK
  4. ALENIA [Concomitant]
     Indication: LUNG DISORDER
     Dosage: 5 GTT, UNK

REACTIONS (3)
  - Death [Fatal]
  - Dyspnoea [Not Recovered/Not Resolved]
  - Pneumonia [Recovered/Resolved]
